FAERS Safety Report 6662868-8 (Version None)
Quarter: 2010Q2

REPORT INFORMATION
  Report Type: 
  Country: None (occurrence: None)
  Receive Date: 20100401
  Receipt Date: 20100318
  Transmission Date: 20101027
  Serious: Yes (Other)
  Sender: FDA-Public Use
  Company Number: ES-RANBAXY-2010RR-32278

PATIENT
  Age: 40 Year
  Sex: Male

DRUGS (2)
  1. LORAZEPAM [Suspect]
     Dosage: 2 MG, QD
  2. VALERIAN/PASSIONFLOWER EXTRACT [Suspect]
     Dosage: 300MG/380 MG

REACTIONS (6)
  - DRUG INTERACTION [None]
  - MOVEMENT DISORDER [None]
  - NERVOUSNESS [None]
  - POTENTIATING DRUG INTERACTION [None]
  - SELF-MEDICATION [None]
  - SOMNOLENCE [None]
